FAERS Safety Report 18079688 (Version 1)
Quarter: 2020Q3

REPORT INFORMATION
  Report Type: Spontaneous
  Country: US (occurrence: US)
  Receive Date: 20200728
  Receipt Date: 20200728
  Transmission Date: 20201103
  Serious: Yes (Other)
  Sender: FDA-Public Use
  Company Number: None

PATIENT
  Age: 28 Year
  Sex: Female
  Weight: 66.23 kg

DRUGS (1)
  1. LAMOTRIGINE 200 MG [Suspect]
     Active Substance: LAMOTRIGINE
     Indication: EPILEPSY
     Route: 048
     Dates: start: 201808, end: 2019

REACTIONS (5)
  - Inability to afford medication [None]
  - Anxiety [None]
  - Seizure [None]
  - Product substitution issue [None]
  - Stress [None]

NARRATIVE: CASE EVENT DATE: 20190310
